FAERS Safety Report 7875780-3 (Version None)
Quarter: 2011Q4

REPORT INFORMATION
  Report Type: 
  Country: None (occurrence: None)
  Receive Date: 20111031
  Receipt Date: 20111027
  Transmission Date: 20120403
  Serious: Yes (Hospitalization)
  Sender: FDA-Public Use
  Company Number: JP-ABBOTT-10P-087-0693099-00

PATIENT
  Sex: Female
  Weight: 45.5 kg

DRUGS (22)
  1. ALLOPURINOL [Concomitant]
     Indication: HYPERTENSION
  2. OMEPRAZOLE [Concomitant]
     Indication: PROPHYLAXIS AGAINST GASTROINTESTINAL ULCER
     Dates: end: 20110630
  3. CLOTIAZEPAM [Concomitant]
     Indication: DEPRESSION
     Dates: end: 20110201
  4. HUMIRA [Suspect]
  5. SULFAMETHOXAZOLE AND TRIMETHOPRIM [Concomitant]
     Indication: INFECTION PROPHYLAXIS
  6. DOMPERIDONE [Concomitant]
     Indication: GASTROINTESTINAL DISORDER
     Route: 048
     Dates: end: 20110201
  7. PREDNISOLONE [Concomitant]
     Indication: PRODUCT USED FOR UNKNOWN INDICATION
  8. VALSARTAN [Concomitant]
     Indication: HYPERTENSION
  9. FLUVASTATIN SODIUM [Concomitant]
     Indication: HYPERCHOLESTEROLAEMIA
  10. PAROXETINE HYDROCHLORIDE [Concomitant]
     Indication: DEPRESSION
     Dates: end: 20110201
  11. NITRAZEPAM [Concomitant]
     Indication: INSOMNIA
     Dates: start: 20101213, end: 20101220
  12. HUMIRA [Suspect]
     Dates: start: 20101229, end: 20110603
  13. CYCLOSPORINE [Concomitant]
     Indication: RENAL TRANSPLANT
  14. DICLOFENAC SODIUM [Concomitant]
     Indication: PRODUCT USED FOR UNKNOWN INDICATION
     Dates: end: 20110201
  15. MAGNESIUM OXIDE [Concomitant]
     Indication: CONSTIPATION
     Dates: start: 20110201
  16. HUMIRA [Suspect]
     Indication: CROHN'S DISEASE
     Dosage: 160 MG LOADING DOSE
     Route: 058
     Dates: start: 20101201, end: 20101201
  17. HUMIRA [Suspect]
     Dates: start: 20101215, end: 20101215
  18. PANTETHINE [Concomitant]
     Indication: PRODUCT USED FOR UNKNOWN INDICATION
     Route: 048
     Dates: end: 20110201
  19. PENTAZOCINE LACTATE [Concomitant]
     Indication: PRODUCT USED FOR UNKNOWN INDICATION
     Route: 048
  20. MESALAMINE [Concomitant]
     Indication: CROHN'S DISEASE
     Route: 048
  21. AMLODIPINE BESYLATE [Concomitant]
     Indication: HYPERTENSION
  22. FERROUS SODIUM CITRATE [Concomitant]
     Indication: ANAEMIA
     Route: 048
     Dates: end: 20110201

REACTIONS (7)
  - PAIN [None]
  - LIVER DISORDER [None]
  - GASTROINTESTINAL HAEMORRHAGE [None]
  - ABDOMINAL PAIN [None]
  - NEURILEMMOMA [None]
  - CROHN'S DISEASE [None]
  - ILEAL ULCER [None]
